FAERS Safety Report 24826879 (Version 2)
Quarter: 2025Q3

REPORT INFORMATION
  Report Type: Spontaneous
  Country: US (occurrence: US)
  Receive Date: 20250109
  Receipt Date: 20250804
  Transmission Date: 20251021
  Serious: No
  Sender: IPSEN BIOPHARMACEUTICALS, INC.
  Company Number: US-IPSEN Group, Research and Development-2024-27019

PATIENT
  Age: 68 Year
  Sex: Female
  Weight: 52 kg

DRUGS (8)
  1. TAZVERIK [Suspect]
     Active Substance: TAZEMETOSTAT HYDROBROMIDE
     Indication: Follicular lymphoma stage I
     Dates: start: 20240628
  2. TAZVERIK [Suspect]
     Active Substance: TAZEMETOSTAT HYDROBROMIDE
     Indication: Follicular lymphoma refractory
  3. LUTEIN [Concomitant]
     Active Substance: LUTEIN
  4. EYLEA [Concomitant]
     Active Substance: AFLIBERCEPT
  5. VITAMINS [Concomitant]
     Active Substance: VITAMINS
  6. NIFEDIPINE [Concomitant]
     Active Substance: NIFEDIPINE
  7. ROSUVASTATIN [Concomitant]
     Active Substance: ROSUVASTATIN
  8. VALACYCLOVIR [Concomitant]
     Active Substance: VALACYCLOVIR HYDROCHLORIDE

REACTIONS (2)
  - Blood cholesterol increased [Unknown]
  - Cancer surgery [Unknown]
